FAERS Safety Report 16068617 (Version 2)
Quarter: 2019Q2

REPORT INFORMATION
  Report Type: Spontaneous
  Country: US (occurrence: US)
  Receive Date: 20190313
  Receipt Date: 20190405
  Transmission Date: 20190711
  Serious: No
  Sender: FDA-Public Use
  Company Number: US-SA-2019SA061823

PATIENT
  Age: 51 Year
  Sex: Female

DRUGS (1)
  1. LANTUS SOLOSTAR [Suspect]
     Active Substance: INSULIN GLARGINE
     Indication: DIABETES MELLITUS
     Dosage: 22 U, BID
     Route: 065

REACTIONS (6)
  - Device operational issue [Unknown]
  - Device breakage [Unknown]
  - Blood glucose increased [Unknown]
  - Eye disorder [Unknown]
  - Product dose omission [Unknown]
  - Inappropriate schedule of product administration [Unknown]
